FAERS Safety Report 8431233-5 (Version None)
Quarter: 2012Q2

REPORT INFORMATION
  Report Type: 
  Country: None (occurrence: None)
  Receive Date: 20120613
  Receipt Date: 20120606
  Transmission Date: 20120825
  Serious: Yes (Other)
  Sender: FDA-Public Use
  Company Number: FR-BRISTOL-MYERS SQUIBB COMPANY-16672982

PATIENT
  Age: 56 Year
  Sex: Female

DRUGS (1)
  1. ABILIFY [Suspect]
     Indication: BIPOLAR DISORDER
     Dosage: INCREASED THE DOSAGE TO 30 MG AND DECREASED TO 15 MG DAILY.

REACTIONS (2)
  - DIARRHOEA [None]
  - MANIA [None]
